FAERS Safety Report 6259773-8 (Version None)
Quarter: 2009Q3

REPORT INFORMATION
  Report Type: 
  Country: None (occurrence: None)
  Receive Date: 20090706
  Receipt Date: 20090706
  Transmission Date: 20100115
  Serious: Yes (Other)
  Sender: FDA-Public Use
  Company Number: None

PATIENT
  Sex: Female
  Weight: 61.2356 kg

DRUGS (2)
  1. ZICAM [Suspect]
     Indication: NASAL CONGESTION
     Dosage: 1 SWAB 2X DAILY NASAL
     Route: 045
     Dates: start: 20070102, end: 20090228
  2. ZICAM [Suspect]
     Indication: NASOPHARYNGITIS
     Dosage: 1 SWAB 2X DAILY NASAL
     Route: 045
     Dates: start: 20070102, end: 20090228

REACTIONS (1)
  - HYPOSMIA [None]
